FAERS Safety Report 13455987 (Version 2)
Quarter: 2017Q2

REPORT INFORMATION
  Report Type: Spontaneous
  Country: TR (occurrence: TR)
  Receive Date: 20170418
  Receipt Date: 20170501
  Transmission Date: 20170830
  Serious: Yes (Death, Other)
  Sender: FDA-Public Use
  Company Number: TR-ACTELION-A-US2017-152640

PATIENT
  Age: 2 Month

DRUGS (4)
  1. TRACLEER [Suspect]
     Active Substance: BOSENTAN
     Indication: MATERNAL EXPOSURE DURING PREGNANCY
     Route: 064
  2. ADCIRCA [Suspect]
     Active Substance: TADALAFIL
     Indication: MATERNAL EXPOSURE DURING PREGNANCY
     Route: 064
  3. VENTAVIS [Suspect]
     Active Substance: ILOPROST
     Indication: MATERNAL EXPOSURE DURING PREGNANCY
     Route: 064
  4. REMODULIN [Suspect]
     Active Substance: TREPROSTINIL
     Indication: MATERNAL EXPOSURE DURING PREGNANCY
     Route: 064

REACTIONS (3)
  - Maternal exposure during pregnancy [Unknown]
  - Premature delivery [Unknown]
  - Infection [Fatal]
